FAERS Safety Report 8581471-6 (Version None)
Quarter: 2012Q3

REPORT INFORMATION
  Report Type: 
  Country: None (occurrence: None)
  Receive Date: 20120809
  Receipt Date: 20120807
  Transmission Date: 20120928
  Serious: Yes (Other)
  Sender: FDA-Public Use
  Company Number: IT-PFIZER INC-2012183791

PATIENT
  Age: 81 Year
  Sex: Female

DRUGS (3)
  1. RANITIDINE [Concomitant]
     Indication: PROPHYLAXIS
     Dosage: 300 MG, 1X/DAY
     Route: 048
     Dates: start: 20111220
  2. METHYLPREDNISOLONE [Concomitant]
     Indication: ASTHENIA
     Dosage: 4 MG, 1X/DAY
     Route: 048
     Dates: start: 20111220
  3. CRIZOTINIB [Suspect]
     Indication: NON-SMALL CELL LUNG CANCER
     Dosage: 250 MG, 2X/DAY
     Route: 048
     Dates: start: 20111220, end: 20120306

REACTIONS (3)
  - VISUAL ACUITY REDUCED [None]
  - HYPOAESTHESIA [None]
  - GAIT DISTURBANCE [None]
